FAERS Safety Report 8454434-9 (Version None)
Quarter: 2012Q2

REPORT INFORMATION
  Report Type: 
  Country: None (occurrence: None)
  Receive Date: 20120621
  Receipt Date: 20120613
  Transmission Date: 20120825
  Serious: No
  Sender: FDA-Public Use
  Company Number: US-BIOGENIDEC-2012BI018733

PATIENT
  Age: 35 Year
  Sex: Female

DRUGS (2)
  1. TYSABRI [Suspect]
     Indication: MULTIPLE SCLEROSIS
     Route: 042
     Dates: start: 20120503, end: 20120503
  2. TYSABRI [Suspect]
     Route: 042
     Dates: start: 20120505

REACTIONS (2)
  - HYPERSENSITIVITY [None]
  - PRURITUS ALLERGIC [None]
